FAERS Safety Report 20987880 (Version 1)
Quarter: 2022Q2

REPORT INFORMATION
  Report Type: Spontaneous
  Country: PH (occurrence: None)
  Receive Date: 20220621
  Receipt Date: 20220621
  Transmission Date: 20220720
  Serious: Yes (Other)
  Sender: FDA-Public Use
  Company Number: PH-ROCHE-3120938

PATIENT
  Age: 61 Year
  Sex: Female

DRUGS (1)
  1. MABTHERA [Suspect]
     Active Substance: RITUXIMAB
     Indication: Non-Hodgkin^s lymphoma
     Dosage: ONGOING: NO
     Route: 041

REACTIONS (5)
  - Burning sensation [Unknown]
  - Paraesthesia [Unknown]
  - Hypoaesthesia [Unknown]
  - Gait inability [Unknown]
  - Recurrent cancer [Unknown]
